FAERS Safety Report 7716199-5 (Version None)
Quarter: 2011Q3

REPORT INFORMATION
  Report Type: 
  Country: None (occurrence: None)
  Receive Date: 20110812
  Receipt Date: 20110712
  Transmission Date: 20111222
  Serious: Yes (Other)
  Sender: FDA-Public Use
  Company Number: 977641

PATIENT
  Age: 62 Year
  Sex: Female
  Weight: 83.18 kg

DRUGS (3)
  1. DEXAMETHASONE [Concomitant]
  2. DOCETAXEL [Suspect]
     Indication: NEOPLASM MALIGNANT
     Dosage: 145 MG, Q 21 D, INTRAVENOUS (NOT OTHERWISE SPECIIFED)
     Route: 042
     Dates: start: 20110711, end: 20110711
  3. KYTRIL [Concomitant]

REACTIONS (1)
  - PHARYNGEAL OEDEMA [None]
